FAERS Safety Report 16355802 (Version 2)
Quarter: 2019Q3

REPORT INFORMATION
  Report Type: Report from Study
  Country: US (occurrence: US)
  Receive Date: 20190525
  Receipt Date: 20190814
  Transmission Date: 20191004
  Serious: Yes (Death, Hospitalization, Other)
  Sender: FDA-Public Use
  Company Number: PHEH2019US022094

PATIENT
  Age: 8 Year
  Sex: Male

DRUGS (3)
  1. CYCLOPHOSPHAMIDE. [Concomitant]
     Active Substance: CYCLOPHOSPHAMIDE
     Indication: CHEMOTHERAPY
     Route: 065
  2. FLUDARABINE [Concomitant]
     Active Substance: FLUDARABINE PHOSPHATE
     Indication: CHEMOTHERAPY
     Route: 065
  3. KYMRIAH [Suspect]
     Active Substance: TISAGENLECLEUCEL
     Indication: B-CELL TYPE ACUTE LEUKAEMIA
     Dosage: UNK, ONCE/SINGLE
     Route: 041
     Dates: start: 20190429

REACTIONS (25)
  - Brain death [Unknown]
  - B-cell type acute leukaemia [Unknown]
  - Treatment failure [Unknown]
  - Multiple organ dysfunction syndrome [Fatal]
  - Liver function test abnormal [Unknown]
  - Hepatic congestion [Unknown]
  - Shock haemorrhagic [Unknown]
  - Brain oedema [Unknown]
  - Cytokine release syndrome [Unknown]
  - Fluid overload [Unknown]
  - Abdominal compartment syndrome [Unknown]
  - Venoocclusive disease [Unknown]
  - Lactic acidosis [Unknown]
  - Haemorrhage [Unknown]
  - Ischaemic cerebral infarction [Unknown]
  - Malignant neoplasm progression [Unknown]
  - Intraventricular haemorrhage [Fatal]
  - Cerebral haemorrhage [Fatal]
  - Hypoxia [Unknown]
  - Mydriasis [Unknown]
  - Cardio-respiratory arrest [Fatal]
  - Thrombosis [Unknown]
  - Abdominal distension [Unknown]
  - Pulmonary oedema [Unknown]
  - Coagulopathy [Unknown]

NARRATIVE: CASE EVENT DATE: 20190516
